FAERS Safety Report 19241808 (Version 1)
Quarter: 2021Q2

REPORT INFORMATION
  Report Type: Spontaneous
  Country: US (occurrence: US)
  Receive Date: 20210511
  Receipt Date: 20210511
  Transmission Date: 20210717
  Serious: No
  Sender: FDA-Public Use
  Company Number: US-TEVA-2021-US-1907464

PATIENT
  Sex: Female

DRUGS (1)
  1. DIAZEPAM TEVA [Suspect]
     Active Substance: DIAZEPAM
     Indication: ANXIETY
     Dosage: 1 TABLET BY MOUTH EVERY 12 HOURS AS NEEDED FOR ANXIETY
     Route: 048

REACTIONS (1)
  - Stupor [Unknown]
